FAERS Safety Report 15208023 (Version 2)
Quarter: 2018Q3

REPORT INFORMATION
  Report Type: Spontaneous
  Country: US (occurrence: US)
  Receive Date: 20180727
  Receipt Date: 20180907
  Transmission Date: 20181010
  Serious: Yes (Other)
  Sender: FDA-Public Use
  Company Number: US-NOVOPROD-611936

PATIENT
  Age: 63 Year
  Sex: Male
  Weight: 116.64 kg

DRUGS (7)
  1. VICTOZA [Suspect]
     Active Substance: LIRAGLUTIDE
     Dosage: 1.2 MG, QD
     Route: 058
     Dates: start: 201805, end: 2018
  2. PIOGLITAZONE. [Suspect]
     Active Substance: PIOGLITAZONE
     Indication: TYPE 2 DIABETES MELLITUS
     Dosage: UNK
     Route: 048
     Dates: end: 2018
  3. VICTOZA [Suspect]
     Active Substance: LIRAGLUTIDE
     Indication: TYPE 2 DIABETES MELLITUS
     Dosage: 0.6 MG, QD
     Route: 058
     Dates: start: 201802, end: 201803
  4. VICTOZA [Suspect]
     Active Substance: LIRAGLUTIDE
     Dosage: 0.6 MG, QD
     Route: 058
     Dates: start: 2018, end: 201805
  5. VICTOZA [Suspect]
     Active Substance: LIRAGLUTIDE
     Dosage: 1.2 MG, QD
     Route: 058
     Dates: start: 201803, end: 2018
  6. VICTOZA [Suspect]
     Active Substance: LIRAGLUTIDE
     Dosage: 0.6 MG, QD
     Route: 058
     Dates: start: 2018
  7. PIOGLITAZONE. [Suspect]
     Active Substance: PIOGLITAZONE
     Dosage: DOSE DECREASED
     Route: 048
     Dates: start: 2018

REACTIONS (11)
  - Hiatus hernia [Unknown]
  - Gastric polyps [Recovering/Resolving]
  - Eructation [Recovered/Resolved]
  - Diverticulum [Recovering/Resolving]
  - Off label use [Recovered/Resolved]
  - Irritable bowel syndrome [Unknown]
  - Blood glucose increased [Unknown]
  - Glycosylated haemoglobin increased [Unknown]
  - Nephrolithiasis [Recovered/Resolved]
  - Barrett^s oesophagus [Unknown]
  - Blood triglycerides increased [Unknown]

NARRATIVE: CASE EVENT DATE: 20180212
